FAERS Safety Report 17826825 (Version 1)
Quarter: 2020Q2

REPORT INFORMATION
  Report Type: Other
  Country: GB (occurrence: GB)
  Receive Date: 20200527
  Receipt Date: 20200527
  Transmission Date: 20200714
  Serious: Yes (Hospitalization)
  Sender: FDA-Public Use
  Company Number: GB-EMCURE PHARMACEUTICALS LTD-2020-EPL-000658

PATIENT
  Age: 83 Year
  Sex: Female
  Weight: 57 kg

DRUGS (5)
  1. CALCITRIOL. [Concomitant]
     Active Substance: CALCITRIOL
  2. LEVOTHYROXINE SODIUM. [Concomitant]
     Active Substance: LEVOTHYROXINE SODIUM
  3. CLOBETASOL [Concomitant]
     Active Substance: CLOBETASOL
  4. HYDROCORTISONE. [Concomitant]
     Active Substance: HYDROCORTISONE
  5. SULFAMETHOXAZOLE, TRIMETHOPRIM [Suspect]
     Active Substance: SULFAMETHOXAZOLE\TRIMETHOPRIM
     Indication: PRODUCT USED FOR UNKNOWN INDICATION
     Dosage: UNK
     Route: 048
     Dates: start: 202002

REACTIONS (2)
  - Acute generalised exanthematous pustulosis [Unknown]
  - Rash [Recovering/Resolving]
